FAERS Safety Report 6428780-4 (Version None)
Quarter: 2009Q4

REPORT INFORMATION
  Report Type: 
  Country: None (occurrence: None)
  Receive Date: 20091103
  Receipt Date: 20091022
  Transmission Date: 20100525
  Serious: Yes (Hospitalization)
  Sender: FDA-Public Use
  Company Number: CLOF-10309

PATIENT
  Age: 6 Year
  Sex: Female
  Weight: 21.3 kg

DRUGS (20)
  1. CLOFARABINE (CLOFARABINE) [Suspect]
     Indication: ACUTE LYMPHOCYTIC LEUKAEMIA
     Dosage: 17 MG, QDX5, INTRAVENOUS
     Route: 042
     Dates: start: 20060720, end: 20060724
  2. CLOFARABINE (CLOFARABINE) [Suspect]
     Indication: LEUKAEMIA RECURRENT
     Dosage: 17 MG, QDX5, INTRAVENOUS
     Route: 042
     Dates: start: 20060720, end: 20060724
  3. ETOPOSIDE [Suspect]
     Indication: ACUTE LYMPHOCYTIC LEUKAEMIA
     Dosage: 63 MG, QDX5, INTRAVENOUS
     Route: 042
     Dates: start: 20060720, end: 20060724
  4. CYCLOPHOSPHAMIDE [Suspect]
     Indication: ACUTE LYMPHOCYTIC LEUKAEMIA
     Dosage: 375 MG, QDX5, INTRAVENOUS
     Route: 042
     Dates: start: 20060720, end: 20060724
  5. MORPHINE [Concomitant]
  6. DIPHENHYDRAMINE HCL [Concomitant]
  7. ACETAMINOPHEN [Concomitant]
  8. REGULAR INSULIN [Concomitant]
  9. FAMOTIDINE [Concomitant]
  10. FILGRASTIM (FILGRASTIM) [Concomitant]
  11. ESOMEPRAZOLE MAGNESIUM [Concomitant]
  12. TPN (PYRIDOXINE HYDROCHLORIDE, TYIROSINE, NICOTINAMIDE) [Concomitant]
  13. SENNOSIDES [Concomitant]
  14. IMMUINE GLOBULIN (IMMUNOGLOBULIN) [Concomitant]
  15. LACTOBACILLUS (LACTOBACILLUS ACIDOPHILUS) [Concomitant]
  16. LORAZEPAM [Concomitant]
  17. TRIMETHOPRIM [Concomitant]
  18. ONDANSETRON [Concomitant]
  19. METOCLOPRAMIDE [Concomitant]
  20. SUCRALFATE [Concomitant]

REACTIONS (30)
  - ASCITES [None]
  - BK VIRUS INFECTION [None]
  - BLADDER DISORDER [None]
  - BONE MARROW FAILURE [None]
  - COLITIS [None]
  - CYSTITIS [None]
  - CYSTITIS HAEMORRHAGIC [None]
  - FEBRILE NEUTROPENIA [None]
  - FIBRIN D DIMER INCREASED [None]
  - GENERALISED OEDEMA [None]
  - HALLUCINATION [None]
  - HEPATOSPLENOMEGALY [None]
  - HUMAN POLYOMAVIRUS INFECTION [None]
  - HYPERGLYCAEMIA [None]
  - HYPERTENSION [None]
  - HYPOXIA [None]
  - LIPASE INCREASED [None]
  - LUNG NEOPLASM [None]
  - LYMPHADENOPATHY [None]
  - METABOLIC ACIDOSIS [None]
  - PAIN [None]
  - PERICARDIAL EFFUSION [None]
  - PLEURAL EFFUSION [None]
  - PNEUMONIA [None]
  - RESPIRATORY ALKALOSIS [None]
  - RESPIRATORY RATE INCREASED [None]
  - STAPHYLOCOCCAL BACTERAEMIA [None]
  - STREPTOCOCCAL BACTERAEMIA [None]
  - TACHYPNOEA [None]
  - WAIST CIRCUMFERENCE INCREASED [None]
